FAERS Safety Report 9297551 (Version 2)
Quarter: 2013Q2

REPORT INFORMATION
  Report Type: Spontaneous
  Country: US (occurrence: US)
  Receive Date: 20130520
  Receipt Date: 20130604
  Transmission Date: 20140414
  Serious: No
  Sender: FDA-Public Use
  Company Number: US-009507513-1305USA008092

PATIENT
  Age: 39 Year
  Sex: Male
  Weight: 106 kg

DRUGS (3)
  1. EMEND FOR INJECTION [Suspect]
     Indication: PROPHYLAXIS OF NAUSEA AND VOMITING
     Dosage: 150 MG, ON DAY 1
     Route: 042
     Dates: start: 20130507
  2. IFOSFAMIDE [Concomitant]
  3. ZOFRAN [Concomitant]

REACTIONS (2)
  - Nausea [Not Recovered/Not Resolved]
  - Drug prescribing error [Unknown]
